FAERS Safety Report 10078711 (Version 3)
Quarter: 2014Q2

REPORT INFORMATION
  Report Type: Spontaneous
  Country: US (occurrence: US)
  Receive Date: 20140415
  Receipt Date: 20140514
  Transmission Date: 20141212
  Serious: Yes (Other)
  Sender: FDA-Public Use
  Company Number: US-SA-2014SA041513

PATIENT
  Age: 72 Year
  Sex: Female
  Weight: 53.1 kg

DRUGS (13)
  1. PLAVIX [Suspect]
     Indication: CARDIOMYOPATHY
     Route: 065
     Dates: start: 2006, end: 201307
  2. SYNTHROID [Concomitant]
  3. TOPROL XL [Concomitant]
  4. VYTORIN [Concomitant]
  5. ESTRADIOL [Concomitant]
  6. ZOLPIDEM [Concomitant]
  7. CHLORDIAZEPOXIDE HYDROCHLORIDE/CLIDINIUM BROMIDE [Concomitant]
  8. LORAZEPAM [Concomitant]
  9. CITRACAL [Concomitant]
  10. CLARITIN [Concomitant]
  11. ALL OTHER THERAPEUTIC PRODUCTS [Concomitant]
  12. VITAMIN B12 [Concomitant]
  13. PEPCID AC [Concomitant]

REACTIONS (4)
  - Carpal tunnel syndrome [Unknown]
  - Atrial fibrillation [Unknown]
  - Haemorrhage [Unknown]
  - Contusion [Unknown]
